FAERS Safety Report 24676568 (Version 2)
Quarter: 2024Q4

REPORT INFORMATION
  Report Type: Spontaneous
  Country: US (occurrence: US)
  Receive Date: 20241128
  Receipt Date: 20241210
  Transmission Date: 20250114
  Serious: No
  Sender: NOVARTIS
  Company Number: US-002147023-NVSC2024US228246

PATIENT
  Sex: Male

DRUGS (2)
  1. TAFINLAR [Suspect]
     Active Substance: DABRAFENIB MESYLATE
     Indication: Malignant melanoma
     Dosage: 100 MG, Q12H
     Route: 048
     Dates: start: 202411
  2. MEKINIST [Suspect]
     Active Substance: TRAMETINIB DIMETHYL SULFOXIDE
     Indication: Malignant melanoma
     Dosage: 1.5 MG, QD
     Route: 048
     Dates: start: 202411

REACTIONS (10)
  - Faeces hard [Unknown]
  - Muscle strain [Unknown]
  - Pain [Unknown]
  - Anorectal discomfort [Unknown]
  - Bowel movement irregularity [Unknown]
  - Feeding disorder [Unknown]
  - Nausea [Unknown]
  - Dry skin [Unknown]
  - Peripheral swelling [Unknown]
  - Constipation [Unknown]
